FAERS Safety Report 5525411-2 (Version None)
Quarter: 2007Q4

REPORT INFORMATION
  Report Type: 
  Country: None (occurrence: None)
  Receive Date: 20071120
  Receipt Date: 20071113
  Transmission Date: 20080405
  Serious: Yes (Hospitalization)
  Sender: FDA-Public Use
  Company Number: TPA2007A02123

PATIENT
  Age: 36 Year
  Sex: Male
  Weight: 118.3 kg

DRUGS (2)
  1. PIOGLITAZONE HCL [Suspect]
     Indication: TYPE 2 DIABETES MELLITUS
     Dosage: 1 IN 1 D, PER ORAL
     Route: 048
     Dates: start: 20070609, end: 20071005
  2. LANTUS [Concomitant]

REACTIONS (4)
  - DIZZINESS [None]
  - FALL [None]
  - HAEMATOMA [None]
  - SYNCOPE [None]
